FAERS Safety Report 15120351 (Version 2)
Quarter: 2018Q3

REPORT INFORMATION
  Report Type: Report from Study
  Country: US (occurrence: US)
  Receive Date: 20180709
  Receipt Date: 20180827
  Transmission Date: 20181010
  Serious: Yes (Hospitalization, Other)
  Sender: FDA-Public Use
  Company Number: US-PFIZER INC-2018233709

PATIENT
  Age: 59 Year
  Sex: Female

DRUGS (5)
  1. FEMARA [Suspect]
     Active Substance: LETROZOLE
     Dosage: UNK
  2. EXEMESTANE. [Concomitant]
     Active Substance: EXEMESTANE
     Dosage: UNK, DAILY
     Route: 048
     Dates: start: 20180624
  3. IBRANCE [Suspect]
     Active Substance: PALBOCICLIB
     Dosage: 100 MG, CYCLIC (FOR 21 DAYS AND 7 DAYS OFF)
     Route: 048
     Dates: start: 20180624, end: 20180628
  4. IBRANCE [Suspect]
     Active Substance: PALBOCICLIB
     Indication: BREAST CANCER
     Dosage: 125 MG, CYCLIC (DAILY FOR 21 DAYS AND 7 DAYS OFF)
     Route: 048
     Dates: start: 20180526
  5. IBRANCE [Suspect]
     Active Substance: PALBOCICLIB
     Dosage: 100 MG, CYCLIC (DAILY FOR 21 DAYS AND 7 DAYS OFF)
     Route: 048

REACTIONS (12)
  - Urinary tract infection [Unknown]
  - Cardiac failure [Unknown]
  - Cellulitis [Unknown]
  - Localised oedema [Unknown]
  - Oedema peripheral [Unknown]
  - Leukopenia [Unknown]
  - Fatigue [Unknown]
  - Fungal skin infection [Unknown]
  - Productive cough [Unknown]
  - Sepsis [Unknown]
  - Pain in extremity [Not Recovered/Not Resolved]
  - Pneumonia [Unknown]

NARRATIVE: CASE EVENT DATE: 2018
